FAERS Safety Report 9691299 (Version 1)
Quarter: 2013Q4

REPORT INFORMATION
  Report Type: Spontaneous
  Country: US (occurrence: US)
  Receive Date: 20131115
  Receipt Date: 20131115
  Transmission Date: 20140711
  Serious: Yes (Hospitalization)
  Sender: FDA-Public Use
  Company Number: US-BAYER-2013-138708

PATIENT
  Age: 30 Year
  Sex: Female
  Weight: 63.04 kg

DRUGS (8)
  1. YAZ [Suspect]
     Dosage: UNK
  2. YASMIN [Suspect]
     Dosage: UNK
  3. TRIAMCINOLONE [Concomitant]
     Route: 061
  4. EFFEXOR [Concomitant]
     Dosage: 75 MG, UNK
     Route: 048
  5. CYCLOBENZAPRINE [Concomitant]
     Dosage: 10 MG, UNK
     Route: 048
     Dates: start: 20070714, end: 20070926
  6. PRO-AIR [Concomitant]
     Route: 045
  7. ROZEREM [Concomitant]
     Dosage: 8 MG, UNK
     Route: 048
  8. RELPAX [Concomitant]
     Dosage: 40 MG, UNK
     Route: 048
     Dates: start: 20070606, end: 20070717

REACTIONS (1)
  - Cerebrovascular accident [Recovered/Resolved]
